FAERS Safety Report 10242829 (Version 2)
Quarter: 2014Q2

REPORT INFORMATION
  Report Type: Spontaneous
  Country: US (occurrence: US)
  Receive Date: 20140618
  Receipt Date: 20140618
  Transmission Date: 20141212
  Serious: No
  Sender: FDA-Public Use
  Company Number: US-US-EMD SERONO, INC.-7141233

PATIENT
  Age: 7 Year
  Sex: Female
  Weight: 22 kg

DRUGS (5)
  1. SAIZEN [(SOMATROPIN (RDNA ORIGIN) FOR INJECTION)] [Suspect]
     Indication: FOETAL GROWTH RESTRICTION
     Route: 058
     Dates: start: 201004
  2. SAIZEN [(SOMATROPIN (RDNA ORIGIN) FOR INJECTION)] [Suspect]
     Indication: SMALL FOR DATES BABY
     Route: 058
  3. SAIZEN [(SOMATROPIN (RDNA ORIGIN) FOR INJECTION)] [Suspect]
     Indication: BODY HEIGHT BELOW NORMAL
     Route: 058
  4. SAIZEN [(SOMATROPIN (RDNA ORIGIN) FOR INJECTION)] [Suspect]
     Indication: GROWTH RETARDATION
     Route: 058
  5. SAIZEN [(SOMATROPIN (RDNA ORIGIN) FOR INJECTION)] [Suspect]
     Route: 058
     Dates: start: 20140530

REACTIONS (9)
  - Pain in extremity [Recovered/Resolved]
  - Fatigue [Recovered/Resolved]
  - Vomiting [Recovering/Resolving]
  - Blood urea increased [Recovered/Resolved]
  - Dermal cyst [Not Recovered/Not Resolved]
  - Acne [Not Recovered/Not Resolved]
  - Blood urea nitrogen/creatinine ratio increased [Unknown]
  - Pain [Unknown]
  - Headache [Not Recovered/Not Resolved]
